FAERS Safety Report 6910646-4 (Version None)
Quarter: 2010Q3

REPORT INFORMATION
  Report Type: 
  Country: None (occurrence: None)
  Receive Date: 20100806
  Receipt Date: 20100728
  Transmission Date: 20110219
  Serious: Yes (Other)
  Sender: FDA-Public Use
  Company Number: BR-B.I. PHARMACEUTICALS,INC./RIDGEFIELD-2010-BP-08567BP

PATIENT
  Age: 35 Year
  Sex: Female

DRUGS (8)
  1. VIRAMUNE [Suspect]
     Indication: ANTIVIRAL TREATMENT
     Route: 048
  2. VIRACEPT [Concomitant]
     Indication: ANTIVIRAL TREATMENT
     Route: 048
  3. COMBIVIR [Concomitant]
     Indication: ANTIVIRAL TREATMENT
     Route: 048
  4. AMPICILLIN SODIUM [Concomitant]
  5. FLUNARIZINE [Concomitant]
  6. MEBENDAZOLE [Concomitant]
  7. METHYLDOPA [Concomitant]
  8. OXYTOCIN [Concomitant]

REACTIONS (1)
  - STILLBIRTH [None]
